FAERS Safety Report 9391953 (Version 2)
Quarter: 2013Q3

REPORT INFORMATION
  Report Type: Spontaneous
  Country: PL (occurrence: PL)
  Receive Date: 20130709
  Receipt Date: 20130717
  Transmission Date: 20140515
  Serious: Yes (Other)
  Sender: FDA-Public Use
  Company Number: PL-PFIZER INC-2013197509

PATIENT
  Age: 68 Year
  Sex: Female

DRUGS (3)
  1. CLINDAMYCIN PHOSPHATE [Suspect]
  2. CIPROFLOXACIN [Suspect]
  3. CEFTRIAXONE [Suspect]

REACTIONS (2)
  - Clostridium difficile infection [Unknown]
  - Nosocomial infection [Unknown]
